FAERS Safety Report 6180692-X (Version None)
Quarter: 2009Q2

REPORT INFORMATION
  Report Type: 
  Country: None (occurrence: None)
  Receive Date: 20090506
  Receipt Date: 20090427
  Transmission Date: 20091009
  Serious: Yes (Other)
  Sender: FDA-Public Use
  Company Number: FR-JNJFOC-20090106783

PATIENT
  Sex: Female
  Weight: 78 kg

DRUGS (6)
  1. REMICADE [Suspect]
     Dosage: CUMULATIVE DOSE 7885 MG
     Route: 042
  2. REMICADE [Suspect]
     Dosage: CUMULATIVE DOSE SINCE THE BEGINNING OF 4185 MG.
     Route: 042
  3. REMICADE [Suspect]
     Indication: COLITIS ULCERATIVE
     Dosage: 4 OR 5 INFUSIONS
     Route: 042
  4. SOLUPRED [Concomitant]
  5. CORTANCYL [Concomitant]
     Indication: COLITIS ULCERATIVE
     Route: 048
  6. PENTASA [Concomitant]
     Indication: COLITIS ULCERATIVE
     Route: 048

REACTIONS (2)
  - ANOGENITAL WARTS [None]
  - FISTULA [None]
